FAERS Safety Report 12321778 (Version 1)
Quarter: 2016Q2

REPORT INFORMATION
  Report Type: Report from Study
  Country: US (occurrence: US)
  Receive Date: 20160502
  Receipt Date: 20160502
  Transmission Date: 20160815
  Serious: Yes (Hospitalization, Other)
  Sender: FDA-Public Use
  Company Number: US-ELI_LILLY_AND_COMPANY-US201510001571

PATIENT
  Age: 65 Year
  Sex: Female

DRUGS (8)
  1. EPIPEN [Concomitant]
     Active Substance: EPINEPHRINE
     Indication: HYPERSENSITIVITY
  2. FORTEO [Suspect]
     Active Substance: TERIPARATIDE
     Indication: BONE DENSITY ABNORMAL
  3. ZYRTEC [Concomitant]
     Active Substance: CETIRIZINE HYDROCHLORIDE
  4. FORTEO [Suspect]
     Active Substance: TERIPARATIDE
     Indication: OSTEOPOROSIS
     Dosage: UNK, QD
     Route: 065
     Dates: start: 20150921, end: 20151012
  5. CLOZAPINE. [Concomitant]
     Active Substance: CLOZAPINE
     Indication: MUSCLE SPASMS
  6. CLONAZEPAM. [Concomitant]
     Active Substance: CLONAZEPAM
  7. ENBREL [Suspect]
     Active Substance: ETANERCEPT
     Indication: PRODUCT USED FOR UNKNOWN INDICATION
     Dosage: UNK, UNKNOWN
     Route: 065
  8. OXYCODONE [Concomitant]
     Active Substance: OXYCODONE
     Indication: PAIN

REACTIONS (25)
  - Fall [Unknown]
  - Tendon injury [Unknown]
  - Choking sensation [Not Recovered/Not Resolved]
  - Tendon rupture [Unknown]
  - Joint swelling [Unknown]
  - Drug hypersensitivity [Unknown]
  - Injection site urticaria [Unknown]
  - Pneumonia [Unknown]
  - Rib fracture [Unknown]
  - Muscle spasms [Unknown]
  - Asthma [Unknown]
  - Peripheral swelling [Unknown]
  - Nausea [Unknown]
  - Asthenia [Unknown]
  - Paraesthesia [Unknown]
  - Pain [Unknown]
  - Rash [Unknown]
  - Complex regional pain syndrome [Unknown]
  - Dyspnoea [Not Recovered/Not Resolved]
  - Fatigue [Unknown]
  - Ligament sprain [Unknown]
  - Scratch [Unknown]
  - Road traffic accident [Unknown]
  - Injection site pruritus [Unknown]
  - Urticaria [Not Recovered/Not Resolved]

NARRATIVE: CASE EVENT DATE: 20150921
